FAERS Safety Report 10711967 (Version 4)
Quarter: 2015Q1

REPORT INFORMATION
  Report Type: Spontaneous
  Country: US (occurrence: US)
  Receive Date: 20150114
  Receipt Date: 20150202
  Transmission Date: 20150721
  Serious: Yes (Hospitalization, Other)
  Sender: FDA-Public Use
  Company Number: US-GLAXOSMITHKLINE-US2015GSK004205

PATIENT
  Sex: Female

DRUGS (1)
  1. WELLBUTRIN [Suspect]
     Active Substance: BUPROPION HYDROCHLORIDE
     Indication: PRODUCT USED FOR UNKNOWN INDICATION
     Dosage: UNK
     Route: 064

REACTIONS (9)
  - Cardiac failure congestive [Unknown]
  - Ventricular septal defect [Unknown]
  - Congenital anomaly [Unknown]
  - Transposition of the great vessels [Unknown]
  - Respiratory failure [Unknown]
  - Foetal exposure during pregnancy [Unknown]
  - Pulmonary artery stenosis [Unknown]
  - Heart disease congenital [Unknown]
  - Diaphragmatic paralysis [Unknown]
